FAERS Safety Report 8066374-8 (Version None)
Quarter: 2011Q4

REPORT INFORMATION
  Report Type: 
  Country: None (occurrence: None)
  Receive Date: 20111221
  Receipt Date: 20110926
  Transmission Date: 20120403
  Serious: Yes (Other)
  Sender: FDA-Public Use
  Company Number: PHEH2011US05133

PATIENT
  Age: 81 Year
  Sex: Male

DRUGS (1)
  1. EXJADE [Suspect]
     Indication: IRON METABOLISM DISORDER
     Dosage: 500 MG, QD, ORAL
     Route: 048
     Dates: start: 20110603, end: 20110914

REACTIONS (1)
  - BLOOD CREATININE INCREASED [None]
